FAERS Safety Report 5811848-0 (Version None)
Quarter: 2008Q3

REPORT INFORMATION
  Report Type: 
  Country: None (occurrence: None)
  Receive Date: 20080716
  Receipt Date: 20080715
  Transmission Date: 20090109
  Serious: Yes (Other)
  Sender: FDA-Public Use
  Company Number: CA-BRISTOL-MYERS SQUIBB COMPANY-14212856

PATIENT
  Age: 76 Year
  Sex: Male

DRUGS (3)
  1. SINEMET [Suspect]
     Indication: PARKINSON'S DISEASE
     Dosage: 1 DOSAGE FORM = 100/25(NO UNITS)
     Route: 048
     Dates: start: 20070801, end: 20080501
  2. VITAMIN TAB [Concomitant]
  3. DIGESTIVE ENZYMES [Concomitant]

REACTIONS (1)
  - MALIGNANT MELANOMA [None]
